FAERS Safety Report 5984424-7 (Version None)
Quarter: 2008Q4

REPORT INFORMATION
  Report Type: 
  Country: None (occurrence: None)
  Receive Date: 20081208
  Receipt Date: 20080915
  Transmission Date: 20090506
  Serious: No
  Sender: FDA-Public Use
  Company Number: US-AMGEN-KDL305865

PATIENT
  Sex: Female

DRUGS (6)
  1. ENBREL [Suspect]
     Indication: PSORIASIS
     Route: 058
     Dates: start: 20080728, end: 20080903
  2. SIMVASTATIN [Concomitant]
  3. PROTONIX [Concomitant]
  4. MOTRIN [Concomitant]
  5. VALIUM [Concomitant]
  6. HYDROCODONE BITARTRATE [Concomitant]

REACTIONS (4)
  - ARTHRALGIA [None]
  - BURNING SENSATION [None]
  - CHEST PAIN [None]
  - DECREASED APPETITE [None]
